FAERS Safety Report 5372364-6 (Version None)
Quarter: 2007Q2

REPORT INFORMATION
  Report Type: 
  Country: None (occurrence: None)
  Receive Date: 20070627
  Receipt Date: 20070620
  Transmission Date: 20071010
  Serious: Yes (Hospitalization)
  Sender: FDA-Public Use
  Company Number: HQWYE711420JUN07

PATIENT
  Age: 81 Year
  Sex: Female

DRUGS (11)
  1. CORDARONE [Suspect]
     Indication: ATRIAL FIBRILLATION
     Route: 048
     Dates: start: 20070410
  2. OMEPRAZOLE [Suspect]
     Route: 048
     Dates: start: 20070505
  3. LOPRIL [Concomitant]
     Route: 048
  4. DETENSIEL [Concomitant]
     Route: 048
  5. TRAMADOL HCL [Concomitant]
     Dosage: UNSPECIFIED
     Dates: start: 20070504
  6. FORLAX [Concomitant]
     Dosage: 1 UNIT PRN
     Route: 048
  7. ACETAMINOPHEN [Concomitant]
     Dosage: 1000 MG PRN
     Route: 048
  8. LASIX [Concomitant]
     Indication: ATRIAL FIBRILLATION
     Route: 048
     Dates: start: 20070301
  9. DAFALGAN [Concomitant]
     Dosage: UNSPECIFIED
     Route: 048
     Dates: start: 20070504
  10. PREVISCAN [Suspect]
     Indication: ATRIAL FIBRILLATION
     Route: 048
     Dates: start: 20070301, end: 20070504
  11. LANSOPRAZOLE [Concomitant]
     Route: 048
     Dates: end: 20070504

REACTIONS (2)
  - ANAEMIA [None]
  - HAEMATOMA [None]
